FAERS Safety Report 6251542-8 (Version None)
Quarter: 2009Q2

REPORT INFORMATION
  Report Type: 
  Country: None (occurrence: None)
  Receive Date: 20090630
  Receipt Date: 20090626
  Transmission Date: 20091009
  Serious: Yes (Other)
  Sender: FDA-Public Use
  Company Number: KP-WATSON-2009-04934

PATIENT
  Age: 5 Year
  Sex: Male

DRUGS (7)
  1. ETOPOSIDE [Suspect]
     Indication: ACUTE MYELOID LEUKAEMIA
     Dosage: 1600 MG/M2 CUMULATIVE
  2. DEXAMETHASONE ACETATE [Suspect]
     Indication: ACUTE MYELOID LEUKAEMIA
     Dosage: UNK
  3. CYTARABINE [Suspect]
     Indication: ACUTE MYELOID LEUKAEMIA
     Dosage: UNK
  4. THIOGUANINE [Suspect]
     Indication: ACUTE MYELOID LEUKAEMIA
     Dosage: UNK
  5. DAUNORUBICIN HCL [Suspect]
     Indication: ACUTE MYELOID LEUKAEMIA
     Dosage: UNK
  6. BUSULFAN [Suspect]
     Indication: ACUTE MYELOID LEUKAEMIA
  7. CYCLOPHOSPHAMIDE [Suspect]
     Indication: ACUTE MYELOID LEUKAEMIA
     Dosage: 120MG/KG CUMULATIVE

REACTIONS (1)
  - SALIVARY GLAND CANCER [None]
